FAERS Safety Report 16061567 (Version 1)
Quarter: 2019Q2

REPORT INFORMATION
  Report Type: Spontaneous
  Country: US (occurrence: US)
  Receive Date: 20190312
  Receipt Date: 20190312
  Transmission Date: 20190711
  Serious: No
  Sender: FDA-Public Use
  Company Number: None

PATIENT
  Age: 41 Year
  Sex: Female
  Weight: 53.1 kg

DRUGS (1)
  1. BUPROPRION HCL XL 150 MG [Suspect]
     Active Substance: BUPROPION HYDROCHLORIDE
     Indication: DEPRESSION
     Dosage: ?          QUANTITY:30 TABLET(S);?
     Route: 048
     Dates: start: 20190305, end: 20190311

REACTIONS (3)
  - Product substitution issue [None]
  - Paraesthesia [None]
  - Drug ineffective [None]

NARRATIVE: CASE EVENT DATE: 20190311
